FAERS Safety Report 10460451 (Version 1)
Quarter: 2014Q3

REPORT INFORMATION
  Report Type: Spontaneous
  Country: CA (occurrence: CA)
  Receive Date: 20140917
  Receipt Date: 20140917
  Transmission Date: 20150326
  Serious: Yes (Other)
  Sender: FDA-Public Use
  Company Number: CA-ROCHE-1462664

PATIENT
  Age: 51 Year
  Sex: Male

DRUGS (4)
  1. RIBAVIRIN. [Suspect]
     Active Substance: RIBAVIRIN
     Indication: PRODUCT USED FOR UNKNOWN INDICATION
     Route: 048
  2. VICTRELIS [Suspect]
     Active Substance: BOCEPREVIR
     Indication: PRODUCT USED FOR UNKNOWN INDICATION
     Route: 058
  3. VICTRELIS [Suspect]
     Active Substance: BOCEPREVIR
     Route: 065
  4. PEGASYS [Suspect]
     Active Substance: PEGINTERFERON ALFA-2A
     Indication: PRODUCT USED FOR UNKNOWN INDICATION
     Route: 058

REACTIONS (5)
  - Pallor [Unknown]
  - Red blood cell count decreased [Unknown]
  - Feeling cold [Unknown]
  - Dyspnoea [Unknown]
  - Fatigue [Unknown]
